FAERS Safety Report 9197274 (Version 1)
Quarter: 2013Q1

REPORT INFORMATION
  Report Type: Spontaneous
  Country: US (occurrence: US)
  Receive Date: 20130328
  Receipt Date: 20130328
  Transmission Date: 20140127
  Serious: Yes (Other)
  Sender: FDA-Public Use
  Company Number: US-BANPHARM-20131025

PATIENT
  Age: 78 Year
  Sex: Female
  Weight: 70.31 kg

DRUGS (6)
  1. ALEVE LIQUID GELS 220MG [Suspect]
     Indication: ARTHRITIS
     Dosage: 1OR 2 DF, QD,
     Route: 048
     Dates: start: 2012, end: 201203
  2. SYNVISC [Concomitant]
  3. VITAMIN D [Concomitant]
  4. COLACE [Concomitant]
  5. NIACIN [Concomitant]
  6. CALCIUM WITH VITAMIN D [Concomitant]

REACTIONS (3)
  - Rectal haemorrhage [Recovered/Resolved]
  - Chills [Recovered/Resolved]
  - Incorrect drug administration duration [Unknown]
